FAERS Safety Report 9681980 (Version 1)
Quarter: 2013Q4

REPORT INFORMATION
  Report Type: Spontaneous
  Country: IL (occurrence: IL)
  Receive Date: 20131111
  Receipt Date: 20131111
  Transmission Date: 20140711
  Serious: Yes (Death, Other)
  Sender: FDA-Public Use
  Company Number: IL-JHP PHARMACEUTICALS, LLC-JHP201300680

PATIENT
  Age: 10 Year
  Sex: Female

DRUGS (5)
  1. COLY-MYCIN M PARENTERAL [Suspect]
     Indication: EVIDENCE BASED TREATMENT
     Dosage: 2 MG/KG, DAILY
     Route: 042
  2. COLY-MYCIN M PARENTERAL [Suspect]
     Dosage: 1.4 MG/KG, DAILY
     Route: 042
  3. VANCOMYCIN [Suspect]
  4. FOSCARNET [Suspect]
  5. CYCLOSPORINE [Suspect]

REACTIONS (3)
  - Multi-organ failure [Fatal]
  - Bronchopulmonary aspergillosis [Fatal]
  - Nephropathy toxic [Unknown]
